FAERS Safety Report 8251734-2 (Version None)
Quarter: 2012Q2

REPORT INFORMATION
  Report Type: 
  Country: None (occurrence: None)
  Receive Date: 20120402
  Receipt Date: 20120327
  Transmission Date: 20120825
  Serious: Yes (Hospitalization)
  Sender: FDA-Public Use
  Company Number: GB-AMGEN-GBRCT2012010894

PATIENT
  Age: 40 Year
  Sex: Male

DRUGS (3)
  1. XGEVA [Suspect]
     Indication: BONE GIANT CELL TUMOUR
     Dosage: 120 MG, QMO
     Route: 058
     Dates: start: 20111017
  2. ACETAMINOPHEN AND CODEINE PHOSPHATE [Concomitant]
     Dosage: UNK
     Dates: start: 20120204, end: 20120216
  3. CIPROFLOXACIN [Concomitant]
     Dosage: 500 MG, UNK
     Dates: start: 20120204, end: 20120216

REACTIONS (1)
  - ORCHITIS [None]
